FAERS Safety Report 13532586 (Version 1)
Quarter: 2017Q2

REPORT INFORMATION
  Report Type: Spontaneous
  Country: US (occurrence: US)
  Receive Date: 20170510
  Receipt Date: 20170510
  Transmission Date: 20170830
  Serious: Yes (Other)
  Sender: FDA-Public Use
  Company Number: US-009507513-1705USA001174

PATIENT

DRUGS (1)
  1. PROSCAR [Suspect]
     Active Substance: FINASTERIDE

REACTIONS (3)
  - Gastrointestinal tube insertion [Unknown]
  - Incorrect route of drug administration [Unknown]
  - Wrong technique in product usage process [Unknown]
